FAERS Safety Report 8187658-9 (Version None)
Quarter: 2012Q1

REPORT INFORMATION
  Report Type: 
  Country: None (occurrence: None)
  Receive Date: 20120306
  Receipt Date: 20120229
  Transmission Date: 20120608
  Serious: Yes (Other)
  Sender: FDA-Public Use
  Company Number: FR-PFIZER INC-2011213640

PATIENT
  Age: 75 Year
  Sex: Female

DRUGS (11)
  1. GLUCOPHAGE [Concomitant]
     Indication: TYPE 2 DIABETES MELLITUS
     Dosage: UNK
  2. ASPEGIC 1000 [Concomitant]
     Dosage: UNK
  3. TAXOTERE [Concomitant]
     Indication: BREAST CANCER
  4. LYRICA [Suspect]
     Indication: SCIATICA
     Dosage: 75 MG, 2X/DAY
     Dates: start: 20090101, end: 20091005
  5. CLONAZEPAM [Concomitant]
     Dosage: 3 GTT, 1X/DAY
  6. LYRICA [Suspect]
     Indication: NEURALGIA
     Dosage: 50 MG, 2X/DAY
     Dates: start: 20091006
  7. PRAVASTATIN [Concomitant]
     Indication: HYPERCHOLESTEROLAEMIA
     Dosage: UNK
  8. ALDACTAZINE [Concomitant]
  9. PREDNISONE TAB [Concomitant]
  10. GRANOCYTE [Concomitant]
  11. PANTOPRAZOLE SODIUM [Concomitant]
     Dosage: UNK

REACTIONS (1)
  - AGE-RELATED MACULAR DEGENERATION [None]
